FAERS Safety Report 17817767 (Version 2)
Quarter: 2021Q4

REPORT INFORMATION
  Report Type: Report from Study
  Country: US (occurrence: US)
  Receive Date: 20200522
  Receipt Date: 20211006
  Transmission Date: 20220303
  Serious: No
  Sender: FDA-Public Use
  Company Number: US-JNJFOC-20171221187

PATIENT

DRUGS (2)
  1. SILTUXIMAB [Suspect]
     Active Substance: SILTUXIMAB
     Indication: Castleman^s disease
     Dosage: 750 MG, ONCE IN EVERY 3 WEEKS
     Route: 042
     Dates: start: 20140818, end: 20150427
  2. SILTUXIMAB [Suspect]
     Active Substance: SILTUXIMAB
     Dosage: 705 MG, ONCE EVERY 3 WEEKS
     Route: 042
     Dates: start: 20150509, end: 20150810

REACTIONS (1)
  - Sunburn [Recovered/Resolved]

NARRATIVE: CASE EVENT DATE: 20150516
